FAERS Safety Report 24868081 (Version 1)
Quarter: 2025Q1

REPORT INFORMATION
  Report Type: Spontaneous
  Country: DK (occurrence: DK)
  Receive Date: 20250121
  Receipt Date: 20250121
  Transmission Date: 20250409
  Serious: Yes (Hospitalization, Other)
  Sender: PFIZER
  Company Number: None

PATIENT
  Age: 53 Year
  Sex: Female
  Weight: 69 kg

DRUGS (9)
  1. CLINDAMYCIN HYDROCHLORIDE [Suspect]
     Active Substance: CLINDAMYCIN HYDROCHLORIDE
     Indication: Staphylococcal infection
     Dosage: 600 MG, 3X/DAY
     Route: 048
     Dates: start: 20240813, end: 20240823
  2. CANDEMOX [CANDESARTAN CILEXETIL] [Concomitant]
     Indication: Migraine prophylaxis
     Dosage: 8 MG, 1X/DAY
     Route: 048
     Dates: start: 20240104
  3. VAGIFEM [Concomitant]
     Active Substance: ESTRADIOL
     Indication: Hormone therapy
     Dosage: 10 UG, 2X/WEEK
     Route: 067
     Dates: start: 20230717
  4. AMITRIPTYLINE [Concomitant]
     Active Substance: AMITRIPTYLINE
     Indication: Pain
     Dosage: 20 MG, 1X/DAY
     Dates: start: 20220906
  5. MONTELUKAST [Concomitant]
     Active Substance: MONTELUKAST
     Indication: Asthma
     Dosage: 10 MG, 1X/DAY
     Dates: start: 20220909
  6. TIOTROPIUM [Concomitant]
     Active Substance: TIOTROPIUM
     Indication: Lung disorder
     Dates: start: 20230214
  7. INNOVAIR [Concomitant]
     Active Substance: BECLOMETHASONE DIPROPIONATE\FORMOTEROL
     Indication: Asthma
     Dosage: 1 DF, 2X/DAY
     Dates: start: 20230117
  8. NASONEX [Concomitant]
     Active Substance: MOMETASONE FUROATE
     Indication: Nasal polyps
     Dosage: 50 UG/DOSE, 200 UG, 2X/DAY
     Dates: start: 20230417
  9. DYMISTA [Concomitant]
     Active Substance: AZELASTINE HYDROCHLORIDE\FLUTICASONE PROPIONATE
     Indication: Nasal disorder
     Dosage: 2 DF, 1X/DAY, STRENGTH 137+50 MICROGRAM/DOSE
     Dates: start: 20140929

REACTIONS (4)
  - Pyrexia [Unknown]
  - Abdominal pain [Unknown]
  - Diarrhoea [Unknown]
  - Clostridium difficile infection [Unknown]

NARRATIVE: CASE EVENT DATE: 20240801
